FAERS Safety Report 9643350 (Version 1)
Quarter: 2013Q4

REPORT INFORMATION
  Report Type: Spontaneous
  Country: AU (occurrence: AU)
  Receive Date: 20131024
  Receipt Date: 20131024
  Transmission Date: 20140711
  Serious: Yes (Other)
  Sender: FDA-Public Use
  Company Number: AU-ELI_LILLY_AND_COMPANY-AU201310004998

PATIENT
  Age: 33 Year
  Sex: Female

DRUGS (3)
  1. OLANZAPINE [Suspect]
     Indication: SCHIZOPHRENIA
     Dosage: 10 MG, QD
     Route: 048
  2. ASENAPINE MALEATE [Suspect]
     Indication: SCHIZOPHRENIA
     Dosage: 20 MG, QD
     Route: 060
  3. ASENAPINE MALEATE [Suspect]
     Dosage: 10 MG, QD

REACTIONS (4)
  - Weight increased [Unknown]
  - Hypertension [Unknown]
  - Paranoia [Recovering/Resolving]
  - Hypercholesterolaemia [Unknown]
